FAERS Safety Report 6370140-9 (Version None)
Quarter: 2009Q3

REPORT INFORMATION
  Report Type: 
  Country: None (occurrence: None)
  Receive Date: 20090923
  Receipt Date: 20071004
  Transmission Date: 20100115
  Serious: Yes (Other)
  Sender: FDA-Public Use
  Company Number: US-ASTRAZENECA-2006UW22313

PATIENT
  Age: 26 Year
  Sex: Female
  Weight: 69.9 kg

DRUGS (11)
  1. SEROQUEL [Suspect]
     Indication: DEPRESSION
     Route: 048
     Dates: end: 20020101
  2. SEROQUEL [Suspect]
     Indication: BIPOLAR DISORDER
     Route: 048
     Dates: end: 20020101
  3. SEROQUEL [Suspect]
     Indication: ANXIETY
     Route: 048
     Dates: end: 20020101
  4. SEROQUEL [Suspect]
     Route: 048
     Dates: start: 20040313
  5. SEROQUEL [Suspect]
     Route: 048
     Dates: start: 20040313
  6. SEROQUEL [Suspect]
     Route: 048
     Dates: start: 20040313
  7. MERIDIA [Concomitant]
     Dates: start: 20020101, end: 20050101
  8. XENICAL [Concomitant]
     Dates: start: 20020101, end: 20050101
  9. HALDOL [Concomitant]
     Dates: start: 19880101
  10. STELAZINE [Concomitant]
     Dates: start: 19880101
  11. TRILAFON [Concomitant]
     Dates: start: 19900101

REACTIONS (3)
  - BLOOD CHOLESTEROL INCREASED [None]
  - DIABETES MELLITUS [None]
  - TARDIVE DYSKINESIA [None]
